FAERS Safety Report 11248888 (Version 1)
Quarter: 2015Q2

REPORT INFORMATION
  Report Type: Spontaneous
  Country: US (occurrence: None)
  Receive Date: 20150630
  Receipt Date: 20150630
  Transmission Date: 20150821
  Serious: Yes (Life-Threatening, Hospitalization, Other)
  Sender: FDA-Public Use
  Company Number: 003-290

PATIENT
  Age: 44 Year
  Sex: Male

DRUGS (1)
  1. CROFAB [Suspect]
     Active Substance: CROTALIDAE POLYVALENT IMMUNE FAB (OVINE)
     Indication: SNAKE BITE
     Dosage: 26 VIALS TOTAL STOPPED

REACTIONS (9)
  - Oedema [None]
  - Face oedema [None]
  - Snake bite [None]
  - Swelling [None]
  - Eye swelling [None]
  - Pneumonia aspiration [None]
  - Vomiting [None]
  - Local swelling [None]
  - Chronic obstructive pulmonary disease [None]
